FAERS Safety Report 5815068-5 (Version None)
Quarter: 2008Q3

REPORT INFORMATION
  Report Type: 
  Country: None (occurrence: None)
  Receive Date: 20080718
  Receipt Date: 20080714
  Transmission Date: 20090109
  Serious: Yes (Other)
  Sender: FDA-Public Use
  Company Number: FR-GENENTECH-260891

PATIENT
  Age: 53 Year
  Sex: Male

DRUGS (2)
  1. MABTHERA [Suspect]
     Indication: WEGENER'S GRANULOMATOSIS
  2. PREDNISONE TAB [Suspect]
     Indication: DRUG USE FOR UNKNOWN INDICATION
     Dosage: 60 MG, UNK

REACTIONS (4)
  - ANAEMIA [None]
  - LYMPHOPENIA [None]
  - NEUTROPENIA [None]
  - PNEUMOCYSTIS JIROVECI PNEUMONIA [None]
